FAERS Safety Report 11269846 (Version 1)
Quarter: 2015Q3

REPORT INFORMATION
  Report Type: Spontaneous
  Country: KR (occurrence: KR)
  Receive Date: 20150714
  Receipt Date: 20150714
  Transmission Date: 20151125
  Serious: Yes (Hospitalization)
  Sender: FDA-Public Use
  Company Number: KR-OTSUKA-US-2015-11228

PATIENT

DRUGS (40)
  1. ACETYLCARNITINE HYDROCHLORIDE [Concomitant]
     Active Substance: ACETYLCARNITINE HYDROCHLORIDE
     Indication: CHRONIC KIDNEY DISEASE
     Dosage: UNK,1 DOSE (S), 1 IN
     Route: 048
     Dates: start: 20141013
  2. GLIMEPIRIDE. [Concomitant]
     Active Substance: GLIMEPIRIDE
     Indication: DIABETES MELLITUS
     Dosage: 4 MG MILLIGRAM(S), 2 IN
     Route: 048
     Dates: start: 20141013
  3. TAMSULOSIN HYDROCHLORIDE. [Concomitant]
     Active Substance: TAMSULOSIN HYDROCHLORIDE
     Indication: BENIGN PROSTATIC HYPERPLASIA
     Dosage: 0.2 MG MILLIGRAM(S), 2 IN
     Route: 048
     Dates: start: 20141013
  4. VIVIR [Concomitant]
     Indication: PROPHYLAXIS
     Dosage: 200 MG MILLIGRAM(S), 1 IN
     Route: 048
     Dates: start: 20141013
  5. NEUTROGIN [Concomitant]
     Active Substance: LENOGRASTIM
     Dosage: 250 ?G, 1 IN
     Route: 058
     Dates: start: 20141106, end: 20141106
  6. FOLIC ACID. [Concomitant]
     Active Substance: FOLIC ACID
     Indication: CHRONIC KIDNEY DISEASE
     Dosage: UNK, 1 DOSE (S), 1 IN
     Route: 048
     Dates: start: 20141013
  7. ROSUVASTATIN CALCIUM. [Concomitant]
     Active Substance: ROSUVASTATIN CALCIUM
     Indication: HYPERTENSION
     Dosage: 10 MG MILLIGRAM(S), 1 IN
     Route: 048
     Dates: start: 20141013
  8. SODIUM BICARBONATE. [Concomitant]
     Active Substance: SODIUM BICARBONATE
     Indication: CHRONIC KIDNEY DISEASE
     Dosage: 500 MG/G, 3 IN
     Route: 048
     Dates: start: 20141013
  9. NEUTROGIN [Concomitant]
     Active Substance: LENOGRASTIM
     Dosage: 250 ?G, 1 IN
     Route: 058
     Dates: start: 20150107, end: 20150109
  10. FLUNAZOLE [Concomitant]
     Active Substance: FLUCONAZOLE
     Indication: PROPHYLAXIS
     Dosage: 100 MG MILLIGRAM(S), 1 IN
     Route: 048
     Dates: start: 20141013
  11. NEUTROGIN [Concomitant]
     Active Substance: LENOGRASTIM
     Indication: NEUTROPENIA
     Dosage: 250 ?G, 1 IN
     Route: 058
     Dates: start: 20141030, end: 20141030
  12. NEUTROGIN [Concomitant]
     Active Substance: LENOGRASTIM
     Dosage: 250 ?G, 1 IN
     Route: 058
     Dates: start: 20141113, end: 20141113
  13. NEUTROGIN [Concomitant]
     Active Substance: LENOGRASTIM
     Dosage: 250 ?G, 1 IN
     Route: 058
     Dates: start: 20150312, end: 20150312
  14. DACOGEN [Suspect]
     Active Substance: DECITABINE
     Dosage: 20 MG/M2, 1 IN
     Route: 042
     Dates: start: 20141215, end: 20141219
  15. BIOTIN [Concomitant]
     Active Substance: BIOTIN
     Indication: CHRONIC KIDNEY DISEASE
     Dosage: UNK, 1 DOSE (S), 1 IN
     Route: 048
     Dates: start: 20141013
  16. RIBOFLAVIN [Concomitant]
     Active Substance: RIBOFLAVIN
     Indication: CHRONIC KIDNEY DISEASE
     Dosage: UNK, 1 DOSE (S), 1 IN
     Route: 048
     Dates: start: 20141013
  17. PYRIDOXINE HYDROCHLORIDE. [Concomitant]
     Active Substance: PYRIDOXINE HYDROCHLORIDE
     Indication: CHRONIC KIDNEY DISEASE
     Dosage: UNK, 1 DOSE (S), 1 IN
     Route: 048
     Dates: start: 20141013
  18. FERROUS SULFATE [Concomitant]
     Active Substance: FERROUS SULFATE\FERROUS SULFATE, DRIED
     Indication: ANAEMIA
     Dosage: UNK, 2 DOSE (S), 1 IN
     Route: 048
     Dates: start: 20141013
  19. DACOGEN [Suspect]
     Active Substance: DECITABINE
     Indication: MYELODYSPLASTIC SYNDROME
     Dosage: 20 MG/M2, 1 IN
     Route: 042
     Dates: start: 20141013, end: 20141017
  20. DACOGEN [Suspect]
     Active Substance: DECITABINE
     Dosage: 20 MG/M2, 1 IN
     Route: 042
     Dates: start: 20141117, end: 20141121
  21. AMLODIPINE BESYLATE. [Concomitant]
     Active Substance: AMLODIPINE BESYLATE
     Indication: HYPERTENSION
     Dosage: 5 MG MILLIGRAM(S), 1 IN
     Route: 048
     Dates: start: 20141013
  22. ASCORBIC ACID. [Concomitant]
     Active Substance: ASCORBIC ACID
     Indication: CHRONIC KIDNEY DISEASE
     Dosage: UNK, 1 DOSE (S), 1 IN
     Route: 048
     Dates: start: 20141013
  23. FUROSEMIDE. [Concomitant]
     Active Substance: FUROSEMIDE
     Indication: CHRONIC KIDNEY DISEASE
     Dosage: 40 MG MILLIGRAM(S), 1 IN
     Route: 048
     Dates: start: 20141013
  24. GINKGO BILOBA [Concomitant]
     Active Substance: GINKGO
     Indication: CHRONIC KIDNEY DISEASE
     Dosage: UNK, 1 DOSE (S), 1 IN
     Route: 048
     Dates: start: 20141013
  25. TRAZODONE HYDROCHLORIDE. [Concomitant]
     Active Substance: TRAZODONE HYDROCHLORIDE
     Indication: DEPRESSION
     Dosage: 25 MG MILLIGRAM(S), 1 IN
     Route: 065
     Dates: start: 20141013
  26. NEUTROGIN [Concomitant]
     Active Substance: LENOGRASTIM
     Dosage: 250 ?G, 1 IN
     Route: 058
     Dates: start: 20150319, end: 20150319
  27. CEFEPIME HYDROCHLORIDE. [Concomitant]
     Active Substance: CEFEPIME HYDROCHLORIDE
     Indication: NEUROFIBROMATOSIS
     Dosage: 2 G, UNK
     Route: 042
     Dates: start: 20150107, end: 20150114
  28. DACOGEN [Suspect]
     Active Substance: DECITABINE
     Dosage: 20 MG/M2, 1 IN
     Route: 042
     Dates: start: 20150330, end: 20150403
  29. CYANOCOBALAMINE [Concomitant]
     Active Substance: CYANOCOBALAMIN
     Indication: CHRONIC KIDNEY DISEASE
     Dosage: UNK, 1 DOSE (S), 1 IN
     Route: 048
     Dates: start: 20141013
  30. NICOTINAMIDE [Concomitant]
     Active Substance: NIACINAMIDE
     Indication: CHRONIC KIDNEY DISEASE
     Dosage: UNK, 1 DOSE (S), 1 IN
     Route: 048
     Dates: start: 20141013
  31. CILOSTAZOL. [Concomitant]
     Active Substance: CILOSTAZOL
     Indication: HYPERTENSION
     Dosage: 100 MG MILLIGRAM(S), 2 IN
     Route: 048
     Dates: start: 20141013
  32. NEUTROGIN [Concomitant]
     Active Substance: LENOGRASTIM
     Dosage: 250 ?G, 1 IN
     Route: 058
     Dates: start: 20141129, end: 20141129
  33. NEUTROGIN [Concomitant]
     Active Substance: LENOGRASTIM
     Dosage: 250 ?G, 1 IN
     Route: 058
     Dates: start: 20150305, end: 20150305
  34. DACOGEN [Suspect]
     Active Substance: DECITABINE
     Dosage: 20 MG/M2, 1 IN
     Route: 042
     Dates: start: 20150223, end: 20150227
  35. DACOGEN [Suspect]
     Active Substance: DECITABINE
     Dosage: 20 MG/M2, 1 IN
     Route: 042
     Dates: start: 20150518, end: 20150522
  36. ASPIRIN. [Concomitant]
     Active Substance: ASPIRIN
     Indication: HYPERTENSION
     Dosage: 100 MG MILLIGRAM(S), 1 IN
     Route: 048
     Dates: start: 20141013
  37. DUTASTERIDE. [Concomitant]
     Active Substance: DUTASTERIDE
     Indication: BENIGN PROSTATIC HYPERPLASIA
     Dosage: 0.5 MG MILLIGRAM(S), 1 IN
     Route: 048
     Dates: start: 20141013
  38. TRADJENTA [Concomitant]
     Active Substance: LINAGLIPTIN
     Indication: BENIGN PROSTATIC HYPERPLASIA
     Dosage: 5 MG MILLIGRAM(S), 1 IN
     Route: 048
     Dates: start: 20141013
  39. CITOPCIN [Concomitant]
     Indication: PROPHYLAXIS
     Dosage: 250 MG MILLIGRAM(S), 2 IN
     Route: 048
     Dates: start: 20141013
  40. NEUTROGIN [Concomitant]
     Active Substance: LENOGRASTIM
     Dosage: 250 ?G, 1 IN
     Route: 058
     Dates: start: 20150423, end: 20150423

REACTIONS (2)
  - Colitis [Recovered/Resolved]
  - Neutropenia [Recovered/Resolved]

NARRATIVE: CASE EVENT DATE: 20150107
